FAERS Safety Report 8256802-7 (Version None)
Quarter: 2012Q2

REPORT INFORMATION
  Report Type: 
  Country: None (occurrence: None)
  Receive Date: 20120403
  Receipt Date: 20120329
  Transmission Date: 20120825
  Serious: Yes (Death, Hospitalization, Other)
  Sender: FDA-Public Use
  Company Number: PHHY2012DE014790

PATIENT
  Sex: Male
  Weight: 84 kg

DRUGS (3)
  1. DOCETAXEL [Concomitant]
     Dosage: UNK
     Dates: start: 20110913
  2. DOCETAXEL [Concomitant]
     Dosage: 150 MG
     Dates: start: 20111011, end: 20111011
  3. ZOMETA [Suspect]
     Indication: BONE DISORDER
     Dosage: 4 MG, EVERY 4 WEEKS
     Route: 042
     Dates: start: 20110927, end: 20111101

REACTIONS (2)
  - PROSTATE CANCER METASTATIC [None]
  - GENERAL PHYSICAL HEALTH DETERIORATION [None]
